FAERS Safety Report 6791394-0 (Version None)
Quarter: 2010Q2

REPORT INFORMATION
  Report Type: 
  Country: None (occurrence: None)
  Receive Date: 20100624
  Receipt Date: 20100426
  Transmission Date: 20101027
  Serious: No
  Sender: FDA-Public Use
  Company Number: US-BAUSCH-2010BL002182

PATIENT
  Age: 76 Year
  Sex: Female
  Weight: 42 kg

DRUGS (2)
  1. BESIVANCE [Suspect]
     Indication: CONJUNCTIVITIS ALLERGIC
     Route: 047
     Dates: start: 20100401, end: 20100401
  2. BESIVANCE [Suspect]
     Indication: OFF LABEL USE
     Route: 047
     Dates: start: 20100401, end: 20100401

REACTIONS (1)
  - VISION BLURRED [None]
